FAERS Safety Report 16124677 (Version 1)
Quarter: 2019Q1

REPORT INFORMATION
  Report Type: Report from Study
  Country: CR (occurrence: CR)
  Receive Date: 20190327
  Receipt Date: 20190327
  Transmission Date: 20190418
  Serious: Yes (Other)
  Sender: FDA-Public Use
  Company Number: PHHY2019CR066778

PATIENT
  Age: 40 Year
  Sex: Male

DRUGS (1)
  1. SCAPHO [Suspect]
     Active Substance: SECUKINUMAB
     Indication: PRODUCT USED FOR UNKNOWN INDICATION
     Dosage: 150 MG, UNK
     Route: 065

REACTIONS (4)
  - Haemorrhagic urticaria [Unknown]
  - Tongue haemorrhage [Unknown]
  - Tongue injury [Unknown]
  - Dry skin [Unknown]
